FAERS Safety Report 10390877 (Version 1)
Quarter: 2014Q3

REPORT INFORMATION
  Report Type: Spontaneous
  Country: US (occurrence: US)
  Receive Date: 20140818
  Receipt Date: 20140818
  Transmission Date: 20150326
  Serious: Yes (Hospitalization, Other)
  Sender: FDA-Public Use
  Company Number: US-GILEAD-2014-0111923

PATIENT
  Age: 68 Year
  Sex: Male

DRUGS (1)
  1. LETAIRIS [Suspect]
     Active Substance: AMBRISENTAN
     Indication: PRODUCT USED FOR UNKNOWN INDICATION
     Route: 065
     Dates: start: 20110209

REACTIONS (6)
  - Fatigue [Unknown]
  - Pneumonia [Unknown]
  - Unevaluable event [Unknown]
  - Malaise [Unknown]
  - Diabetes mellitus [Unknown]
  - Vertigo [Unknown]
